FAERS Safety Report 14355046 (Version 2)
Quarter: 2018Q1

REPORT INFORMATION
  Report Type: Report from Study
  Country: US (occurrence: US)
  Receive Date: 20180105
  Receipt Date: 20180202
  Transmission Date: 20180509
  Serious: Yes (Death, Hospitalization, Other)
  Sender: FDA-Public Use
  Company Number: US-PFIZER INC-2017555088

PATIENT
  Age: 62 Year
  Sex: Female
  Weight: 75.6 kg

DRUGS (4)
  1. DENOSUMAB [Concomitant]
     Active Substance: DENOSUMAB
     Dosage: UNK
  2. IBRANCE [Suspect]
     Active Substance: PALBOCICLIB
     Indication: BREAST CANCER METASTATIC
     Dosage: 125 MG, DAILY
     Route: 048
     Dates: start: 20171225
  3. IBRANCE [Suspect]
     Active Substance: PALBOCICLIB
     Dosage: 125 MG, DAILY
     Route: 048
     Dates: start: 20171214, end: 20171228
  4. FULVESTRANT. [Concomitant]
     Active Substance: FULVESTRANT
     Dosage: UNK

REACTIONS (11)
  - Pancytopenia [Fatal]
  - Intestinal perforation [Fatal]
  - Cardiac arrest [Unknown]
  - Acute respiratory failure [Fatal]
  - Arrhythmia [Unknown]
  - Stomatitis [Unknown]
  - Neutropenia [Fatal]
  - Pathological fracture [Fatal]
  - Sepsis [Fatal]
  - Ventricular fibrillation [Fatal]
  - Constipation [Unknown]

NARRATIVE: CASE EVENT DATE: 201712
